FAERS Safety Report 7382932-8 (Version None)
Quarter: 2011Q1

REPORT INFORMATION
  Report Type: 
  Country: None (occurrence: None)
  Receive Date: 20110330
  Receipt Date: 20101018
  Transmission Date: 20110831
  Serious: Yes (Other)
  Sender: FDA-Public Use
  Company Number: US-BAYER-201029217NA

PATIENT
  Sex: Female
  Weight: 90.703 kg

DRUGS (4)
  1. SERTRALINE [Concomitant]
  2. YAZ [Suspect]
     Indication: MENSTRUAL CYCLE MANAGEMENT
     Dosage: UNK UNK, UNK
     Route: 048
     Dates: start: 20070101, end: 20100401
  3. YAZ [Suspect]
     Indication: POLYCYSTIC OVARIES
  4. YAZ [Suspect]
     Indication: ORAL CONTRACEPTION

REACTIONS (3)
  - CHOLELITHIASIS [None]
  - GASTROINTESTINAL DISORDER [None]
  - POST CHOLECYSTECTOMY SYNDROME [None]
